FAERS Safety Report 12730021 (Version 3)
Quarter: 2017Q1

REPORT INFORMATION
  Report Type: Report from Study
  Country: None (occurrence: IL)
  Receive Date: 20160909
  Receipt Date: 20170113
  Transmission Date: 20170428
  Serious: Yes (Hospitalization, Other)
  Sender: FDA-Public Use
  Company Number: IL-ABBVIE-16P-082-1722584-00

PATIENT
  Sex: Male

DRUGS (1)
  1. DUODOPA [Suspect]
     Active Substance: CARBIDOPA\LEVODOPA
     Indication: PRODUCT USED FOR UNKNOWN INDICATION
     Route: 050
     Dates: start: 20140816

REACTIONS (5)
  - Muscle contracture [Unknown]
  - Writer^s cramp [Unknown]
  - Tendon injury [Recovered/Resolved]
  - Pain in extremity [Unknown]
  - Device dislocation [Unknown]
